FAERS Safety Report 6632646-4 (Version None)
Quarter: 2010Q1

REPORT INFORMATION
  Report Type: 
  Country: None (occurrence: None)
  Receive Date: 20100312
  Receipt Date: 20100310
  Transmission Date: 20100710
  Serious: Yes (Other)
  Sender: FDA-Public Use
  Company Number: US-B.I. PHARMACEUTICALS,INC./RIDGEFIELD-2010-BP-01736BP

PATIENT
  Age: 52 Year
  Sex: Male

DRUGS (6)
  1. AGGRENOX [Suspect]
  2. NITROGLYCERIN [Suspect]
     Indication: MYOCARDIAL INFARCTION
  3. EFFIENT [Concomitant]
     Dosage: 10 MG
  4. PRAVASTATIN SODIUM [Concomitant]
     Dosage: 20 MG
  5. CARVEDILOL [Concomitant]
     Dosage: 12.5 MG
  6. BAYER LOW DOSE [Concomitant]
     Dosage: 162 MG

REACTIONS (6)
  - FALL [None]
  - HYPERHIDROSIS [None]
  - LIMB DISCOMFORT [None]
  - LOSS OF CONSCIOUSNESS [None]
  - MYOCARDIAL INFARCTION [None]
  - VISUAL IMPAIRMENT [None]
